FAERS Safety Report 4706219-4 (Version None)
Quarter: 2005Q2

REPORT INFORMATION
  Report Type: 
  Country: None (occurrence: None)
  Receive Date: 20050629
  Receipt Date: 20050620
  Transmission Date: 20051028
  Serious: Yes (Other)
  Sender: FDA-Public Use
  Company Number: 200510740BCC

PATIENT
  Age: 64 Year
  Sex: Female
  Weight: 170 kg

DRUGS (5)
  1. ALEVE (CAPLET) [Suspect]
     Indication: BACK PAIN
     Dosage: SEE IMAGE
     Dates: start: 20050210, end: 20050212
  2. ALEVE (CAPLET) [Suspect]
     Indication: BACK PAIN
     Dosage: SEE IMAGE
     Dates: start: 20050213
  3. ATENOLOL [Concomitant]
  4. ATACAND [Concomitant]
  5. TRIAMTERENE [Concomitant]

REACTIONS (4)
  - BLOOD PRESSURE INCREASED [None]
  - CONDITION AGGRAVATED [None]
  - DRUG INTERACTION [None]
  - FEELING ABNORMAL [None]
